FAERS Safety Report 9607034 (Version 2)
Quarter: 2013Q4

REPORT INFORMATION
  Report Type: Report from Study
  Country: GB (occurrence: GB)
  Receive Date: 20131009
  Receipt Date: 20131031
  Transmission Date: 20140711
  Serious: Yes (Hospitalization)
  Sender: FDA-Public Use
  Company Number: GB-AMGEN-GBRCT2013069460

PATIENT
  Age: 56 Year
  Sex: Male
  Weight: 130 kg

DRUGS (5)
  1. ETANERCEPT [Suspect]
     Indication: PSORIASIS
     Dosage: 50 MG, QWK
     Route: 065
     Dates: start: 20121128
  2. WARFARIN [Concomitant]
     Dosage: UNK
     Dates: start: 20071101
  3. DIGOXIN [Concomitant]
     Dosage: UNK
     Dates: start: 20071101
  4. SIMVASTATIN [Concomitant]
     Dosage: UNK
     Dates: start: 20071101
  5. VITAMIN B [Concomitant]
     Dosage: UNK
     Dates: start: 20071101

REACTIONS (1)
  - Psoriasis [Recovered/Resolved with Sequelae]
